FAERS Safety Report 17664260 (Version 1)
Quarter: 2020Q2

REPORT INFORMATION
  Report Type: Other
  Country: PL (occurrence: PL)
  Receive Date: 20200414
  Receipt Date: 20200414
  Transmission Date: 20200713
  Serious: Yes (Hospitalization)
  Sender: FDA-Public Use
  Company Number: PL-CELLTRION INC.-2020PL021333

PATIENT

DRUGS (5)
  1. KALIPOZ [Concomitant]
     Active Substance: POTASSIUM CHLORIDE
  2. POLPRAZOL [OMEPRAZOLE] [Concomitant]
     Active Substance: OMEPRAZOLE
  3. ESSENTIALE FORTE [Concomitant]
  4. METEX [METFORMIN HYDROCHLORIDE] [Concomitant]
  5. REMSIMA [Suspect]
     Active Substance: INFLIXIMAB
     Indication: CROHN^S DISEASE
     Dosage: DOSAGE: 5-10 MG PER KG; ONLY 44 MG WAS ADMINISTERED, INFUSION WAS STOPPED
     Route: 042
     Dates: start: 201606, end: 20170810

REACTIONS (7)
  - Dyspnoea [Recovered/Resolved]
  - Product use issue [Unknown]
  - Anaphylactic reaction [Recovered/Resolved]
  - Blood pressure diastolic decreased [Recovered/Resolved]
  - Dysphonia [Recovered/Resolved]
  - Erythema [Recovered/Resolved]
  - Tachycardia [Recovered/Resolved]

NARRATIVE: CASE EVENT DATE: 20170810
